FAERS Safety Report 5166879-3 (Version None)
Quarter: 2006Q4

REPORT INFORMATION
  Report Type: 
  Country: None (occurrence: None)
  Receive Date: 20061204
  Receipt Date: 20061204
  Transmission Date: 20070319
  Serious: Yes (Hospitalization)
  Sender: FDA-Public Use
  Company Number: None

PATIENT
  Age: 66 Year
  Sex: Female
  Weight: 62.5964 kg

DRUGS (1)
  1. LIPITOR [Suspect]
     Indication: BLOOD CHOLESTEROL INCREASED
     Dosage: 20 MG. ONCE A DAY PO
     Route: 048
     Dates: start: 20000701, end: 20060623

REACTIONS (3)
  - DYSSTASIA [None]
  - FALL [None]
  - POLYMYALGIA RHEUMATICA [None]
